FAERS Safety Report 18253354 (Version 3)
Quarter: 2020Q3

REPORT INFORMATION
  Report Type: Spontaneous
  Country: US (occurrence: US)
  Receive Date: 20200910
  Receipt Date: 20200915
  Transmission Date: 20201103
  Serious: No
  Sender: FDA-Public Use
  Company Number: US-PFIZER INC-2019493244

PATIENT
  Age: 6 Decade
  Sex: Male
  Weight: 82.55 kg

DRUGS (1)
  1. SILDENAFIL CITRATE. [Suspect]
     Active Substance: SILDENAFIL CITRATE
     Indication: ERECTILE DYSFUNCTION
     Dosage: 100 MG, TWO OR THREE TIMES A WEEK

REACTIONS (2)
  - Drug ineffective [Unknown]
  - Anger [Unknown]
